FAERS Safety Report 9674888 (Version 1)
Quarter: 2013Q4

REPORT INFORMATION
  Report Type: Spontaneous
  Country: US (occurrence: None)
  Receive Date: 20131106
  Receipt Date: 20131106
  Transmission Date: 20140711
  Serious: Yes (Life-Threatening)
  Sender: FDA-Public Use
  Company Number: None

PATIENT
  Sex: Male

DRUGS (2)
  1. TEMOZOLOMIDE [Suspect]
     Indication: BRAIN NEOPLASM MALIGNANT
     Dosage: 100MG DAILY PO X5 DAYS OF 28 DAY CYCLE
     Dates: start: 20131003
  2. TEMOZOLOMIDE [Suspect]
     Dosage: 180MG DAILY PO X5 DAYS OF 28 DAY CYCLE
     Dates: start: 20131003

REACTIONS (3)
  - Grand mal convulsion [None]
  - Product substitution issue [None]
  - Therapeutic response unexpected with drug substitution [None]
